FAERS Safety Report 24710635 (Version 4)
Quarter: 2025Q1

REPORT INFORMATION
  Report Type: Spontaneous
  Country: IN (occurrence: IN)
  Receive Date: 20241209
  Receipt Date: 20250218
  Transmission Date: 20250409
  Serious: Yes (Hospitalization)
  Sender: ROCHE
  Company Number: IN-ROCHE-10000037054

PATIENT
  Age: 64 Year
  Sex: Male

DRUGS (1)
  1. TECENTRIQ [Suspect]
     Active Substance: ATEZOLIZUMAB
     Indication: Hepatocellular carcinoma
     Route: 040
     Dates: start: 20240704

REACTIONS (9)
  - Malaise [Unknown]
  - Haematemesis [Unknown]
  - Off label use [Unknown]
  - Limb discomfort [Unknown]
  - Lung disorder [Unknown]
  - Haemoglobin decreased [Unknown]
  - Off label use [Unknown]
  - Hypotension [Unknown]
  - Haemorrhage [Unknown]
